FAERS Safety Report 25240218 (Version 1)
Quarter: 2025Q2

REPORT INFORMATION
  Report Type: Spontaneous
  Country: KR (occurrence: KR)
  Receive Date: 20250425
  Receipt Date: 20250425
  Transmission Date: 20250716
  Serious: Yes (Other)
  Sender: PFIZER
  Company Number: KR-PFIZER INC-202500086255

PATIENT
  Age: 15 Year
  Sex: Male

DRUGS (3)
  1. VINCRISTINE SULFATE [Suspect]
     Active Substance: VINCRISTINE SULFATE
     Indication: Burkitt^s lymphoma
     Dosage: 2 MG, 1X/DAY
     Dates: start: 20240308, end: 20240308
  2. DOXORUBICIN HYDROCHLORIDE [Suspect]
     Active Substance: DOXORUBICIN HYDROCHLORIDE
     Indication: Burkitt^s lymphoma
     Dosage: 49 MG, 1X/DAY
     Dates: start: 20240309, end: 20240310
  3. CYCLOPHOSPHAMIDE [Suspect]
     Active Substance: CYCLOPHOSPHAMIDE
     Indication: Burkitt^s lymphoma
     Dosage: 820 MG, 2X/DAY
     Dates: start: 20240309, end: 20240311

REACTIONS (2)
  - Leukopenia [Recovering/Resolving]
  - Febrile neutropenia [Recovering/Resolving]

NARRATIVE: CASE EVENT DATE: 20240319
